FAERS Safety Report 7646536-1 (Version None)
Quarter: 2011Q3

REPORT INFORMATION
  Report Type: 
  Country: None (occurrence: None)
  Receive Date: 20110725
  Receipt Date: 20110707
  Transmission Date: 20111222
  Serious: Yes (Other)
  Sender: FDA-Public Use
  Company Number: JHP201100357

PATIENT
  Age: 56 Year
  Sex: Male

DRUGS (20)
  1. EPINEPHRINE [Concomitant]
  2. GLYCOPYRROLATE [Concomitant]
  3. DEXTROSE 5% [Concomitant]
  4. PROTAMINE (PROTAMINE HYDROCHLORIDE) [Concomitant]
  5. CALCIUM CHLORIDE [Concomitant]
  6. PANCURONIUM (PANCURONIUM BROMIDE) [Concomitant]
  7. MANNITOL [Concomitant]
  8. SUFENTANIL CITRATE [Concomitant]
  9. NEOSTIGMINE (NEOSTIGMINE) [Concomitant]
  10. INSULIN (INSULIN) [Concomitant]
  11. AMICAR [Concomitant]
  12. FAMOTIDINE [Concomitant]
  13. BICARBONATE (SODIUM BICARBONATE) [Concomitant]
  14. MIDAZOLAM HYDROCHLORIDE [Concomitant]
  15. ETOMIDATE [Concomitant]
  16. SUCCINYLCHOLINE CHLORIDE [Concomitant]
  17. DANTROLENE SODIUM [Suspect]
     Indication: HYPERTHERMIA MALIGNANT
     Dosage: 1050 MG, TOTAL, INTRAVENOUS
     Route: 042
  18. PHENYLEPHRINE HCL [Concomitant]
  19. ISOFLURANE [Concomitant]
  20. LASIX [Concomitant]

REACTIONS (3)
  - MUSCULAR WEAKNESS [None]
  - CARDIAC OUTPUT DECREASED [None]
  - HYPOTENSION [None]
